FAERS Safety Report 7043490-0 (Version None)
Quarter: 2010Q3

REPORT INFORMATION
  Report Type: 
  Country: None (occurrence: None)
  Receive Date: 20100929
  Receipt Date: 20100621
  Transmission Date: 20110219
  Serious: No
  Sender: FDA-Public Use
  Company Number: US-WYE-H16102110

PATIENT
  Age: 71 Year
  Sex: Female
  Weight: 62.2 kg

DRUGS (5)
  1. PRISTIQ [Suspect]
     Indication: DEPRESSION
     Dosage: 50 MG 1X PER 1 DAY
     Dates: start: 20100601, end: 20100101
  2. ARIMIDEX ^ZENECA^ (ANASTROZOLE) [Concomitant]
  3. LIPITOR (ATORVASTATNI) [Concomitant]
  4. VALIUM [Concomitant]
  5. ASPIRIN [Concomitant]

REACTIONS (5)
  - ABDOMINAL PAIN UPPER [None]
  - DIZZINESS [None]
  - DRUG EFFECT DECREASED [None]
  - FATIGUE [None]
  - NAUSEA [None]
